FAERS Safety Report 21961492 (Version 2)
Quarter: 2023Q1

REPORT INFORMATION
  Report Type: Spontaneous
  Country: US (occurrence: US)
  Receive Date: 20230207
  Receipt Date: 20230221
  Transmission Date: 20230417
  Serious: Yes (Other)
  Sender: FDA-Public Use
  Company Number: US-AUROBINDO-AUR-APL-2023-005082

PATIENT
  Age: 53 Year
  Sex: Male

DRUGS (7)
  1. GABAPENTIN [Suspect]
     Active Substance: GABAPENTIN
     Indication: Abdominal pain
     Dosage: 1 DOSAGE FORM, 3 TIMES A DAY (Y 7AM, 3PM, 11PM)
     Route: 065
  2. GABAPENTIN [Suspect]
     Active Substance: GABAPENTIN
     Indication: Nerve injury
  3. GABAPENTIN [Suspect]
     Active Substance: GABAPENTIN
     Indication: Vomiting
  4. GABAPENTIN [Suspect]
     Active Substance: GABAPENTIN
     Indication: Nausea
  5. GABAPENTIN [Suspect]
     Active Substance: GABAPENTIN
     Indication: Decreased appetite
  6. PRILOSEC [Concomitant]
     Active Substance: OMEPRAZOLE MAGNESIUM
     Indication: Product used for unknown indication
     Dosage: UNK
     Route: 065
  7. Fluxol [Concomitant]
     Indication: Product used for unknown indication
     Dosage: UNK
     Route: 065

REACTIONS (4)
  - Foreign body in throat [Not Recovered/Not Resolved]
  - Frustration tolerance decreased [Not Recovered/Not Resolved]
  - Somnolence [Not Recovered/Not Resolved]
  - Throat irritation [Not Recovered/Not Resolved]
